FAERS Safety Report 9719177 (Version 1)
Quarter: 2013Q4

REPORT INFORMATION
  Report Type: Report from Study
  Country: TW (occurrence: TW)
  Receive Date: 20131127
  Receipt Date: 20131127
  Transmission Date: 20140711
  Serious: No
  Sender: FDA-Public Use
  Company Number: PHHY2013TW136326

PATIENT
  Age: 31 Year
  Sex: Male

DRUGS (34)
  1. AMN107 [Suspect]
     Dates: start: 20110713
  2. BROWN MIXTURE [Concomitant]
     Indication: COUGH
     Dates: start: 20130224, end: 20130227
  3. CEFTRIAXONE [Concomitant]
     Indication: ENCEPHALITIS
     Dates: start: 20121122, end: 20121128
  4. CIMETIDINE [Concomitant]
     Indication: VOMITING
     Dates: start: 20121121, end: 20121212
  5. DEFENSE [Concomitant]
     Indication: PROPHYLAXIS
     Dates: start: 20121113
  6. DIPHENHYDRAMINE [Concomitant]
     Indication: DIZZINESS
     Dates: start: 20130224, end: 20130224
  7. DIPHENIDOL [Concomitant]
     Indication: DIZZINESS
     Dates: start: 20121121, end: 20121226
  8. DUPIN [Concomitant]
     Indication: EPILEPSY
     Dates: start: 20130201, end: 20130201
  9. FINSKA LP [Concomitant]
     Indication: RHINORRHOEA
     Dates: start: 20130201, end: 20130204
  10. FLUNARINE [Concomitant]
     Indication: ENCEPHALITIS
     Dates: start: 20121121, end: 20121205
  11. GLUCOPHAGE [Concomitant]
     Indication: TYPE 2 DIABETES MELLITUS
  12. KENTAMIN [Concomitant]
     Indication: SUDDEN HEARING LOSS
     Dates: start: 20121224, end: 20121227
  13. KENTAMIN [Concomitant]
     Dates: start: 20130123, end: 20130126
  14. KENTAMIN [Concomitant]
     Dates: start: 20130130, end: 20130206
  15. MEDICON A [Concomitant]
     Indication: COUGH
     Dates: start: 20130201, end: 20130204
  16. NIMODIPINE [Concomitant]
     Indication: ENCEPHALITIS
     Dates: start: 20121122, end: 20121226
  17. NORGESIC [Concomitant]
     Indication: HEADACHE
     Dates: start: 20121117, end: 20121120
  18. NORGESIC [Concomitant]
     Dates: start: 20121222, end: 20121225
  19. NOVAMIN [Concomitant]
     Indication: VOMITING
     Dates: start: 20121117, end: 20121117
  20. NOVOMIX [Concomitant]
     Indication: TYPE 2 DIABETES MELLITUS
  21. PREDNISOLONE [Concomitant]
     Indication: DIZZINESS
     Dates: start: 20130123, end: 20130206
  22. RINDERON [Concomitant]
     Indication: ENCEPHALITIS
     Dates: start: 20121121, end: 20121123
  23. RINDERON [Concomitant]
     Indication: SUDDEN HEARING LOSS
     Dates: start: 20121224, end: 20121224
  24. SIBELIUM [Concomitant]
     Indication: SUDDEN HEARING LOSS
     Dates: start: 20121224, end: 20121227
  25. SIBELIUM [Concomitant]
     Dates: start: 20130224, end: 20130227
  26. SINPHADOL [Concomitant]
     Indication: DIZZINESS
     Dates: start: 20121205, end: 20121219
  27. SINPHADOL [Concomitant]
     Dates: start: 20130108
  28. SMECTA [Concomitant]
     Indication: DIARRHOEA
     Route: 048
     Dates: start: 20130201, end: 20130204
  29. TRAMAL [Concomitant]
     Indication: HEADACHE
     Dates: start: 20121222, end: 20121222
  30. ULTRACET [Concomitant]
     Indication: HEADACHE
     Dates: start: 20121121, end: 20121128
  31. VANCOMYCIN [Concomitant]
     Indication: ENCEPHALITIS
     Dates: start: 20121122, end: 20121128
  32. WELLPIN [Concomitant]
     Indication: PROPHYLAXIS
     Dates: start: 20130123, end: 20130206
  33. ZOVIRAX [Concomitant]
     Indication: ENCEPHALITIS
     Dates: start: 20121122, end: 20121128
  34. VOLTAREN ^NOVARTIS^ [Concomitant]
     Indication: HEADACHE
     Dates: start: 20130130, end: 20130206

REACTIONS (1)
  - Insomnia [Unknown]
